FAERS Safety Report 6233371-4 (Version None)
Quarter: 2009Q2

REPORT INFORMATION
  Report Type: 
  Country: None (occurrence: None)
  Receive Date: 20090616
  Receipt Date: 20090616
  Transmission Date: 20091009
  Serious: Yes (Hospitalization)
  Sender: FDA-Public Use
  Company Number: None

PATIENT
  Age: 55 Year
  Sex: Male

DRUGS (8)
  1. FENTANYL-100 [Suspect]
     Dosage: 50 MCG
  2. DOPAMINE HCL [Concomitant]
  3. NOREPINEPHRINE BITARTRATE [Concomitant]
  4. CISATRACURIUM [Concomitant]
  5. MIDAZOLAM HCL [Concomitant]
  6. NITROUS OXIDE [Concomitant]
  7. VASOPRESSIN [Concomitant]
  8. ZOSYN [Concomitant]

REACTIONS (1)
  - SEDATION [None]
